FAERS Safety Report 4601248-3 (Version None)
Quarter: 2005Q1

REPORT INFORMATION
  Report Type: 
  Country: None (occurrence: None)
  Receive Date: 20050304
  Receipt Date: 20050225
  Transmission Date: 20050727
  Serious: Yes (Death, Life-Threatening, Hospitalization, Other)
  Sender: FDA-Public Use
  Company Number: KII-2005-0015322

PATIENT
  Age: 19 Year
  Sex: Male

DRUGS (6)
  1. OXYCONTIN [Suspect]
  2. METHADONE(METHADONE) [Suspect]
  3. COCAINE(COCAINE) [Suspect]
  4. FENTANYL(FENTANYL) [Suspect]
  5. BENZODIAZEPINE DERIVATIVES [Suspect]
  6. TETRAHYDROCANNABINOL (TETRAHYDROCANNABINOL) [Suspect]

REACTIONS (18)
  - ANOXIC ENCEPHALOPATHY [None]
  - ANURIA [None]
  - AREFLEXIA [None]
  - BLOOD CREATINE PHOSPHOKINASE ABNORMAL [None]
  - BLOOD CREATINE PHOSPHOKINASE INCREASED [None]
  - BLOOD CREATININE ABNORMAL [None]
  - BLOOD PH DECREASED [None]
  - BLOOD POTASSIUM DECREASED [None]
  - BODY TEMPERATURE DECREASED [None]
  - CARDIO-RESPIRATORY ARREST [None]
  - COMA [None]
  - CORNEAL REFLEX DECREASED [None]
  - DIALYSIS [None]
  - HYPERTENSION [None]
  - LIVER FUNCTION TEST ABNORMAL [None]
  - POLYSUBSTANCE ABUSE [None]
  - PUPIL FIXED [None]
  - SINUS TACHYCARDIA [None]
